FAERS Safety Report 17961230 (Version 2)
Quarter: 2020Q3

REPORT INFORMATION
  Report Type: Spontaneous
  Country: None (occurrence: MX)
  Receive Date: 20200629
  Receipt Date: 20200710
  Transmission Date: 20201103
  Serious: Yes (Other)
  Sender: FDA-Public Use
  Company Number: MX-POPULATION COUNCIL, INC.-2086811

PATIENT
  Age: 28 Year
  Sex: Female

DRUGS (1)
  1. JADELLE [Suspect]
     Active Substance: LEVONORGESTREL
     Indication: CONTRACEPTION
     Route: 059
     Dates: start: 20191127

REACTIONS (1)
  - Device dislocation [Not Recovered/Not Resolved]

NARRATIVE: CASE EVENT DATE: 20200623
